FAERS Safety Report 13600242 (Version 1)
Quarter: 2017Q2

REPORT INFORMATION
  Report Type: Spontaneous
  Country: MX (occurrence: MX)
  Receive Date: 20170601
  Receipt Date: 20170601
  Transmission Date: 20170830
  Serious: Yes (Other)
  Sender: FDA-Public Use
  Company Number: MX-009507513-1705MEX014289

PATIENT

DRUGS (1)
  1. ESMERON [Suspect]
     Active Substance: ROCURONIUM BROMIDE
     Indication: OTORHINOLARYNGOLOGICAL SURGERY
     Dosage: UNK
     Dates: start: 20170524, end: 20170524

REACTIONS (2)
  - Drug ineffective [Unknown]
  - Endotracheal intubation complication [Unknown]

NARRATIVE: CASE EVENT DATE: 20170524
